FAERS Safety Report 9349697 (Version 1)
Quarter: 2013Q2

REPORT INFORMATION
  Report Type: Report from Study
  Country: JP (occurrence: JP)
  Receive Date: 20130614
  Receipt Date: 20130614
  Transmission Date: 20140414
  Serious: Yes (Other)
  Sender: FDA-Public Use
  Company Number: JP-009507513-1305JPN006426

PATIENT
  Age: 4 Year
  Sex: Male

DRUGS (1)
  1. AROGLYCEM [Suspect]
     Dosage: 43.75 MG, BID
     Route: 048
     Dates: start: 20080909, end: 20090930

REACTIONS (1)
  - Epilepsy [Recovering/Resolving]
